FAERS Safety Report 17279288 (Version 1)
Quarter: 2020Q1

REPORT INFORMATION
  Report Type: Spontaneous
  Country: CN (occurrence: CN)
  Receive Date: 20200116
  Receipt Date: 20200116
  Transmission Date: 20200409
  Serious: Yes (Death, Hospitalization, Other)
  Sender: FDA-Public Use
  Company Number: CN-SEBELA IRELAND LIMITED-2020SEB00001

PATIENT
  Age: 5 Day
  Sex: Female
  Weight: 1.66 kg

DRUGS (3)
  1. LABETALOL HYDROCHLORIDE. [Suspect]
     Active Substance: LABETALOL HYDROCHLORIDE
     Indication: HYPERTENSION
     Dosage: 600 MG, 1X/DAY (EXPOSED DURING FULL PREGNANCY)
     Route: 048
  2. LABETALOL HYDROCHLORIDE. [Suspect]
     Active Substance: LABETALOL HYDROCHLORIDE
     Dosage: 800 MG, 1X/DAY
     Route: 048
  3. NIFEDIPINE. [Concomitant]
     Active Substance: NIFEDIPINE
     Indication: HYPERTENSION
     Dosage: 30 MG, 1X/DAY, STARTED 3 WEEKS BEFORE DELIVERY
     Route: 065

REACTIONS (6)
  - Dyspnoea [Not Recovered/Not Resolved]
  - Blood glucose abnormal [Not Recovered/Not Resolved]
  - Acidosis [Not Recovered/Not Resolved]
  - Drug withdrawal syndrome neonatal [Fatal]
  - Hypoalbuminaemia [Not Recovered/Not Resolved]
  - Hypotension [Recovered/Resolved]
